FAERS Safety Report 4452124-0 (Version None)
Quarter: 2004Q3

REPORT INFORMATION
  Report Type: 
  Country: None (occurrence: None)
  Receive Date: 20040913
  Receipt Date: 20040720
  Transmission Date: 20050211
  Serious: No
  Sender: FDA-Public Use
  Company Number: 2004-BP-05929BP

PATIENT
  Age: 52 Year
  Sex: Female

DRUGS (13)
  1. SPIRIVA [Suspect]
     Indication: CHRONIC OBSTRUCTIVE AIRWAYS DISEASE
     Dosage: 18 MCG (18 MCG), IH
     Route: 055
     Dates: start: 20040706, end: 20040718
  2. ADVAIR (SERETIDE MITE) [Suspect]
     Indication: CHRONIC OBSTRUCTIVE AIRWAYS DISEASE
  3. DUONEB [Suspect]
     Indication: CHRONIC OBSTRUCTIVE AIRWAYS DISEASE
  4. SEREVENT [Suspect]
     Indication: CHRONIC OBSTRUCTIVE AIRWAYS DISEASE
     Dosage: 50 MCG
  5. ALBUTEROL [Suspect]
     Indication: CHRONIC OBSTRUCTIVE AIRWAYS DISEASE
     Dosage: 2.5
  6. SINGULAIR [Suspect]
     Indication: ASTHMA
  7. ZYRTEC [Concomitant]
  8. ACIPHEX [Concomitant]
  9. SUCRALFATE [Concomitant]
  10. PREMARIN [Concomitant]
  11. RINOCORT AQUA [Concomitant]
  12. BENICAR [Concomitant]
  13. SURALFATE [Concomitant]

REACTIONS (2)
  - BURNING SENSATION [None]
  - CHEST PAIN [None]
